FAERS Safety Report 6578453-2 (Version None)
Quarter: 2010Q1

REPORT INFORMATION
  Report Type: 
  Country: None (occurrence: None)
  Receive Date: 20100211
  Receipt Date: 20100202
  Transmission Date: 20100710
  Serious: Yes (Death, Hospitalization)
  Sender: FDA-Public Use
  Company Number: US-AMGEN-QUU386302

PATIENT
  Sex: Female

DRUGS (13)
  1. NPLATE [Suspect]
     Indication: DRUG USE FOR UNKNOWN INDICATION
  2. RITUXAN [Concomitant]
  3. IMMU-G [Concomitant]
  4. PREDNISONE TAB [Concomitant]
  5. EXCEDRIN (MIGRAINE) [Concomitant]
  6. DIGOXIN [Concomitant]
     Route: 048
  7. LOPRESSOR [Concomitant]
     Route: 048
  8. MULTI-VITAMINS [Concomitant]
  9. IRON [Concomitant]
     Route: 048
  10. VITAMIN C [Concomitant]
     Route: 048
  11. SURFAK [Concomitant]
     Route: 048
  12. PRILOSEC [Concomitant]
     Route: 048
  13. TYLENOL-500 [Concomitant]
     Route: 048

REACTIONS (2)
  - ENDOCARDITIS STAPHYLOCOCCAL [None]
  - SEPSIS [None]
